FAERS Safety Report 7877626-6 (Version None)
Quarter: 2011Q4

REPORT INFORMATION
  Report Type: 
  Country: None (occurrence: None)
  Receive Date: 20111031
  Receipt Date: 20111018
  Transmission Date: 20120403
  Serious: Yes (Other)
  Sender: FDA-Public Use
  Company Number: US-VERTEX PHARMACEUTICALS INC.-AE-2011-002409

PATIENT
  Sex: Female
  Weight: 106.24 kg

DRUGS (3)
  1. PEGASYS [Concomitant]
     Indication: HEPATITIS C
     Route: 058
     Dates: start: 20110826
  2. INCIVEK [Suspect]
     Indication: HEPATITIS C
     Dates: start: 20110826
  3. RIBAVIRIN [Concomitant]
     Indication: HEPATITIS C
     Route: 048
     Dates: start: 20110826

REACTIONS (13)
  - MOBILITY DECREASED [None]
  - ANAL PRURITUS [None]
  - DEPRESSION [None]
  - INFLUENZA LIKE ILLNESS [None]
  - LETHARGY [None]
  - AMNESIA [None]
  - ASTHENIA [None]
  - FATIGUE [None]
  - HAEMORRHOIDS [None]
  - COUGH [None]
  - PRURITUS GENERALISED [None]
  - NEOPLASM [None]
  - ANAEMIA [None]
